FAERS Safety Report 9474664 (Version 1)
Quarter: 2013Q3

REPORT INFORMATION
  Report Type: Spontaneous
  Country: GB (occurrence: GB)
  Receive Date: 20130823
  Receipt Date: 20130823
  Transmission Date: 20140515
  Serious: Yes (Disabling)
  Sender: FDA-Public Use
  Company Number: GB-ASTRAZENECA-2013SE63872

PATIENT
  Age: 64 Year
  Sex: Male

DRUGS (12)
  1. TICAGRELOR [Suspect]
     Indication: ANGIOPLASTY
     Route: 048
     Dates: start: 20130127, end: 20130807
  2. LISINOPRIL [Concomitant]
     Route: 048
  3. ASPIRIN [Concomitant]
  4. ATORVASTATIN [Concomitant]
  5. BENDROFLUAZIDE [Concomitant]
  6. DILTIAZEM [Concomitant]
  7. ISOSORBIDE MONONITRATE [Concomitant]
  8. METFORMIN [Concomitant]
  9. NEBIVOLOL [Concomitant]
  10. NICORANDIL [Concomitant]
  11. NITRAZEPAM [Concomitant]
  12. NOVOMIX [Concomitant]

REACTIONS (2)
  - Activities of daily living impaired [Unknown]
  - Dyspnoea [Recovered/Resolved]
